FAERS Safety Report 7981948-8 (Version None)
Quarter: 2011Q4

REPORT INFORMATION
  Report Type: 
  Country: None (occurrence: None)
  Receive Date: 20111212
  Receipt Date: 20110923
  Transmission Date: 20120403
  Serious: Yes (Other)
  Sender: FDA-Public Use
  Company Number: 2011SP045323

PATIENT
  Age: 47 Year
  Sex: Female

DRUGS (5)
  1. HYDROCHLOROTHIAZIDE [Concomitant]
  2. SAPHRIS [Suspect]
     Indication: PSYCHOTIC DISORDER
     Dosage: 5 MG;BID; PO, 10 MG; BID; PO
     Route: 048
     Dates: start: 20110916
  3. SAPHRIS [Suspect]
     Indication: PSYCHOTIC DISORDER
     Dosage: 5 MG;BID; PO, 10 MG; BID; PO
     Route: 048
     Dates: end: 20110922
  4. GLUCOPHAGE [Concomitant]
  5. LISINOPRIL [Concomitant]

REACTIONS (3)
  - HYPOAESTHESIA ORAL [None]
  - DYSPNOEA [None]
  - SWOLLEN TONGUE [None]
